FAERS Safety Report 9950067 (Version 1)
Quarter: 2014Q1

REPORT INFORMATION
  Report Type: Report from Study
  Country: US (occurrence: US)
  Receive Date: 20140304
  Receipt Date: 20140304
  Transmission Date: 20141002
  Serious: No
  Sender: FDA-Public Use
  Company Number: US-ABBVIE-13P-163-1067738-00

PATIENT
  Age: 43 Year
  Sex: Male

DRUGS (10)
  1. HUMIRA [Suspect]
     Indication: PSORIATIC ARTHROPATHY
     Dates: start: 20130218
  2. LISINOPRIL [Concomitant]
     Indication: HYPERTENSION
  3. CELEXA [Concomitant]
     Indication: DEPRESSION
  4. CELEXA [Concomitant]
     Indication: ANXIETY
  5. ZANAFLEX [Concomitant]
     Indication: PAIN
     Dosage: AS NEEDED
  6. XANAX [Concomitant]
     Indication: ANXIETY
  7. NUCYNTA [Concomitant]
     Indication: PAIN
     Dosage: AS NEEDED
  8. LYRICA [Concomitant]
     Indication: PAIN
  9. LYRICA [Concomitant]
     Indication: PSORIATIC ARTHROPATHY
  10. LYRICA [Concomitant]
     Indication: FIBROMYALGIA

REACTIONS (5)
  - Dizziness [Not Recovered/Not Resolved]
  - Pyrexia [Not Recovered/Not Resolved]
  - Headache [Not Recovered/Not Resolved]
  - Cough [Not Recovered/Not Resolved]
  - Nasal congestion [Not Recovered/Not Resolved]
